FAERS Safety Report 23099587 (Version 1)
Quarter: 2023Q4

REPORT INFORMATION
  Report Type: Report from Study
  Country: US (occurrence: US)
  Receive Date: 20231024
  Receipt Date: 20231024
  Transmission Date: 20240110
  Serious: Yes (Other)
  Sender: FDA-Public Use
  Company Number: US-HORIZON THERAPEUTICS-HZN-2023-008047

PATIENT

DRUGS (1)
  1. ACTIMMUNE [Suspect]
     Active Substance: INTERFERON GAMMA-1B
     Indication: Chronic granulomatous disease
     Dosage: UNK
     Route: 065
     Dates: start: 20171009

REACTIONS (3)
  - Splenic infarction [Unknown]
  - Neuralgia [Unknown]
  - Chest pain [Unknown]
